FAERS Safety Report 16399315 (Version 2)
Quarter: 2019Q3

REPORT INFORMATION
  Report Type: Spontaneous
  Country: DE (occurrence: DE)
  Receive Date: 20190606
  Receipt Date: 20190718
  Transmission Date: 20191004
  Serious: Yes (Other)
  Sender: FDA-Public Use
  Company Number: DE-UCBSA-2019023314

PATIENT
  Age: 3 Month
  Sex: Female
  Weight: 2.52 kg

DRUGS (7)
  1. LEVETIRACETAM. [Suspect]
     Active Substance: LEVETIRACETAM
     Indication: EPILEPSY
     Dosage: 3000 MILLIGRAM DAILY
     Route: 064
  2. CLOBAZAM. [Suspect]
     Active Substance: CLOBAZAM
     Indication: EPILEPSY
     Dosage: UNK
     Route: 063
  3. TAVOR (LORAZEPAM) [Suspect]
     Active Substance: LORAZEPAM
     Dosage: 1 MILLIGRAM DAILY(ON DEMAND)
     Route: 063
  4. LEVETIRACETAM. [Suspect]
     Active Substance: LEVETIRACETAM
     Dosage: 3000 MILLIGRAM DIALY
     Route: 063
  5. TAVOR (LORAZEPAM) [Suspect]
     Active Substance: LORAZEPAM
     Indication: EPILEPSY
     Dosage: 1 MILLIGRAM DAILY(ON DEMAND)
     Route: 064
  6. TOPIRAMATE. [Suspect]
     Active Substance: TOPIRAMATE
     Indication: EPILEPSY
     Dosage: 250 MILLIGRAM, DAILY
     Route: 064
  7. TOPIRAMATE. [Suspect]
     Active Substance: TOPIRAMATE
     Dosage: 250 MILLIGRAM DAILY
     Route: 063

REACTIONS (4)
  - Exposure via breast milk [Unknown]
  - Hypopnoea [Recovered/Resolved]
  - Maternal exposure during pregnancy [Unknown]
  - Apnoea [Recovered/Resolved]
